FAERS Safety Report 6626083-6 (Version None)
Quarter: 2010Q1

REPORT INFORMATION
  Report Type: 
  Country: None (occurrence: None)
  Receive Date: 20100310
  Receipt Date: 20100302
  Transmission Date: 20100710
  Serious: Yes (Hospitalization, Other)
  Sender: FDA-Public Use
  Company Number: A0849249A

PATIENT
  Age: 68 Year
  Sex: Female

DRUGS (2)
  1. ADVAIR DISKUS 100/50 [Suspect]
     Indication: EMPHYSEMA
     Route: 055
  2. SPIRIVA [Suspect]
     Dosage: 18MCG PER DAY
     Route: 055
     Dates: start: 20040101

REACTIONS (4)
  - COLLAPSE OF LUNG [None]
  - DYSPHONIA [None]
  - LUNG NEOPLASM MALIGNANT [None]
  - PNEUMONIA [None]
